FAERS Safety Report 13792789 (Version 2)
Quarter: 2017Q3

REPORT INFORMATION
  Report Type: Spontaneous
  Country: US (occurrence: US)
  Receive Date: 20170726
  Receipt Date: 20170803
  Transmission Date: 20171127
  Serious: Yes (Other)
  Sender: FDA-Public Use
  Company Number: US-AUROBINDO-AUR-APL-2017-37541

PATIENT
  Age: 19 Year
  Sex: Male
  Weight: 43.3 kg

DRUGS (6)
  1. HYDROCORTISONE. [Suspect]
     Active Substance: HYDROCORTISONE
     Indication: JUVENILE IDIOPATHIC ARTHRITIS
     Dosage: 50 MG, UNK
     Route: 042
  2. NAPROXEN. [Concomitant]
     Active Substance: NAPROXEN
     Indication: JUVENILE IDIOPATHIC ARTHRITIS
     Dosage: 500 MG, TWO TIMES A DAY
     Route: 065
  3. HYDROCORTISONE. [Suspect]
     Active Substance: HYDROCORTISONE
     Dosage: 30 MG, EVERY EIGHT HOURS
     Route: 042
  4. HYDROCORTISONE. [Suspect]
     Active Substance: HYDROCORTISONE
     Dosage: 20 MG, UNK
     Route: 042
  5. PREDNISONE. [Suspect]
     Active Substance: PREDNISONE
     Indication: JUVENILE IDIOPATHIC ARTHRITIS
     Dosage: 5 MG, TWO TIMES A DAY
     Route: 065
  6. METHOTREXATE. [Suspect]
     Active Substance: METHOTREXATE
     Indication: JUVENILE IDIOPATHIC ARTHRITIS
     Dosage: 20 MG, EVERY WEEK
     Route: 065

REACTIONS (8)
  - Diverticulitis [Recovered/Resolved]
  - Central obesity [Recovered/Resolved]
  - Abdominal distension [Recovered/Resolved]
  - Retroperitoneal abscess [Recovered/Resolved]
  - Abdominal pain lower [Recovered/Resolved]
  - Cushingoid [Recovered/Resolved]
  - Abdominal abscess [Recovered/Resolved]
  - Tachycardia [Recovered/Resolved]
